FAERS Safety Report 17185906 (Version 1)
Quarter: 2019Q4

REPORT INFORMATION
  Report Type: Spontaneous
  Country: BR (occurrence: BR)
  Receive Date: 20191220
  Receipt Date: 20191220
  Transmission Date: 20200122
  Serious: Yes (Other)
  Sender: FDA-Public Use
  Company Number: BR-SA-2019SA287880

PATIENT
  Age: 61 Year
  Sex: Female
  Weight: 53 kg

DRUGS (8)
  1. NOVORAPID [Concomitant]
     Active Substance: INSULIN ASPART
     Dosage: UNK UNK, TID
     Route: 065
  2. LANTUS SOLOSTAR [Suspect]
     Active Substance: INSULIN GLARGINE
     Indication: DIABETES MELLITUS
     Dosage: TWICE A DAY THE DOSE WAS ACCORDING TO HER GLYCEMIA
     Route: 058
     Dates: start: 2009, end: 201910
  3. LAMITOR [Concomitant]
     Active Substance: LAMOTRIGINE
     Indication: SYNCOPE
     Dosage: AT MORNING AND AT AFTERNOON
     Route: 048
     Dates: start: 2015
  4. PURAN [Concomitant]
     Active Substance: LEVOTHYROXINE SODIUM
     Indication: THYROID DISORDER
     Dosage: 1 DF, QD
     Route: 048
     Dates: start: 2009
  5. TRILEPTAL [Concomitant]
     Active Substance: OXCARBAZEPINE
     Indication: SYNCOPE
     Dosage: AT MORNING AND AT AFTERNOON
     Route: 048
     Dates: start: 2011
  6. LANTUS SOLOSTAR [Suspect]
     Active Substance: INSULIN GLARGINE
     Dosage: TWICE A DAY THE DOSE WAS ACCORDING TO HER GLYCEMIA
     Route: 058
     Dates: start: 2009, end: 201910
  7. LANTUS SOLOSTAR [Suspect]
     Active Substance: INSULIN GLARGINE
     Dosage: 50 IU, QD
     Route: 058
     Dates: start: 201910
  8. SIMVASTATIN. [Concomitant]
     Active Substance: SIMVASTATIN
     Indication: BLOOD CHOLESTEROL
     Dosage: 1 DF, QD
     Route: 048
     Dates: start: 2009

REACTIONS (9)
  - Tremor [Recovered/Resolved]
  - Syncope [Unknown]
  - Blood glucose increased [Recovered/Resolved]
  - Diabetes mellitus inadequate control [Unknown]
  - Blood glucose decreased [Recovered/Resolved]
  - Intentional dose omission [Unknown]
  - Inappropriate schedule of product administration [Unknown]
  - Sensory loss [Unknown]
  - Vision blurred [Recovered/Resolved]

NARRATIVE: CASE EVENT DATE: 2009
